FAERS Safety Report 18132616 (Version 1)
Quarter: 2020Q3

REPORT INFORMATION
  Report Type: Spontaneous
  Country: NL (occurrence: NL)
  Receive Date: 20200811
  Receipt Date: 20200811
  Transmission Date: 20201103
  Serious: Yes (Other)
  Sender: FDA-Public Use
  Company Number: NL-TEVA-2020-NL-1811803

PATIENT
  Age: 72 Year
  Sex: Male

DRUGS (3)
  1. PREDNISOLON TABLET  5MG / BRAND NAME NOT SPECIFIED [Concomitant]
     Dosage: 5 MG, THERAPY START DATE : ASKU, THERAPY END DATE : ASKU
  2. ALENDRONINEZUUR TABLET 70MG / BRAND NAME NOT SPECIFIED [Suspect]
     Active Substance: ALENDRONIC ACID
     Indication: OSTEOPOROSIS PROPHYLAXIS
     Dosage: ONCE A WEEK, 70MG
     Dates: start: 20180726, end: 20200116
  3. CALCIUMCARB/COLECALC KAUWTB 1,25G/800IE (500MG CA) / TACAL D3 KAUWTABL [Concomitant]
     Dosage: 1.25 G / 800 UNITS, THERAPY START DATE : ASKU, THERAPY END DATE : ASKU

REACTIONS (1)
  - Osteomyelitis [Unknown]

NARRATIVE: CASE EVENT DATE: 20200101
